FAERS Safety Report 16908806 (Version 1)
Quarter: 2019Q4

REPORT INFORMATION
  Report Type: Spontaneous
  Country: US (occurrence: US)
  Receive Date: 20191011
  Receipt Date: 20191011
  Transmission Date: 20200122
  Serious: Yes (Hospitalization)
  Sender: FDA-Public Use
  Company Number: None

PATIENT
  Age: 52 Year
  Sex: Female

DRUGS (21)
  1. MS CONTIN [Concomitant]
     Active Substance: MORPHINE SULFATE
  2. METFORMIN [Concomitant]
     Active Substance: METFORMIN HYDROCHLORIDE
  3. LISINOPRIL. [Concomitant]
     Active Substance: LISINOPRIL
  4. FEMARA [Concomitant]
     Active Substance: LETROZOLE
  5. FAMOTIDINE. [Concomitant]
     Active Substance: FAMOTIDINE
  6. VITAMIN D [Concomitant]
     Active Substance: VITAMIN D NOS
  7. PAROXETINE. [Concomitant]
     Active Substance: PAROXETINE
  8. XGEVA [Concomitant]
     Active Substance: DENOSUMAB
  9. VITAMIN K [Concomitant]
     Active Substance: PHYTONADIONE
  10. PAXIL [Concomitant]
     Active Substance: PAROXETINE HYDROCHLORIDE
  11. NEXIUM [Concomitant]
     Active Substance: ESOMEPRAZOLE MAGNESIUM
  12. IBRANCE [Suspect]
     Active Substance: PALBOCICLIB
     Indication: BREAST CANCER
     Route: 048
     Dates: start: 20190823
  13. SPRONOLACT [Concomitant]
  14. PEPCID [Concomitant]
     Active Substance: FAMOTIDINE
  15. MAGNESIUM [Concomitant]
     Active Substance: MAGNESIUM
  16. ESOMEPRA [Concomitant]
     Active Substance: ESOMEPRAZOLE
  17. MULTIVITAMIN [Concomitant]
     Active Substance: VITAMINS
  18. MONTELUKAST [Concomitant]
     Active Substance: MONTELUKAST SODIUM
  19. LUPRON [Concomitant]
     Active Substance: LEUPROLIDE ACETATE
  20. CARVEDILOL. [Concomitant]
     Active Substance: CARVEDILOL
  21. ASPIRIN. [Concomitant]
     Active Substance: ASPIRIN

REACTIONS (3)
  - Therapy change [None]
  - Fatigue [None]
  - Catheterisation cardiac [None]
